FAERS Safety Report 6185488-0 (Version None)
Quarter: 2009Q2

REPORT INFORMATION
  Report Type: 
  Country: None (occurrence: None)
  Receive Date: 20090511
  Receipt Date: 20090430
  Transmission Date: 20091009
  Serious: Yes (Hospitalization)
  Sender: FDA-Public Use
  Company Number: PHEH2009US02829

PATIENT
  Sex: Female
  Weight: 97.506 kg

DRUGS (11)
  1. RECLAST [Suspect]
     Indication: OSTEOPOROSIS
     Dosage: 5 MG, ANNUALLY
     Route: 042
     Dates: start: 20090210
  2. ALLOPURINOL [Concomitant]
     Dosage: 300 MG, TID
     Dates: start: 20090302
  3. COUMADIN [Concomitant]
     Dosage: 2.5 MG, UNK
     Dates: start: 20090317
  4. LASIX [Concomitant]
     Dosage: 40 MG, UNK
  5. MICRO-K [Concomitant]
     Dosage: 10 MEQ, 2 TABS DAILY
     Dates: start: 20090324
  6. NEURONTIN [Concomitant]
     Dosage: 400 MG, QID
     Dates: start: 20090121
  7. NORVASC [Concomitant]
     Dosage: UNK
     Dates: start: 20081111
  8. SYMBICORT TURBUHALER ^DRACO^ [Concomitant]
  9. ALBUTEROL [Concomitant]
  10. COMBIVENT [Concomitant]
  11. INSULIN [Concomitant]
     Dosage: UNK
     Dates: start: 20061009

REACTIONS (5)
  - BLOOD CREATINE PHOSPHOKINASE INCREASED [None]
  - BLOOD CREATINE PHOSPHOKINASE MB INCREASED [None]
  - MUSCLE SPASMS [None]
  - MYALGIA [None]
  - POLYNEUROPATHY [None]
